FAERS Safety Report 16893343 (Version 3)
Quarter: 2022Q1

REPORT INFORMATION
  Report Type: Report from Study
  Country: US (occurrence: None)
  Receive Date: 20191008
  Receipt Date: 20220117
  Transmission Date: 20220424
  Serious: Yes (Hospitalization, Other)
  Sender: FDA-Public Use
  Company Number: US-ROCHE-2240126

PATIENT
  Age: 63 Year
  Sex: Male
  Weight: 103.6 kg

DRUGS (5)
  1. ATEZOLIZUMAB [Suspect]
     Active Substance: ATEZOLIZUMAB
     Indication: Cholangiocarcinoma
     Dosage: ATEZOLIZUMAB MOST RECENT DOSE ON 06/NOV/2018 (1680 MG)?ATEZOLIZUMAB: 840 MG IV ON DAYS 1 AND 15
     Route: 042
     Dates: start: 20180925
  2. ATEZOLIZUMAB [Suspect]
     Active Substance: ATEZOLIZUMAB
     Indication: Bile duct adenocarcinoma
  3. COBIMETINIB [Suspect]
     Active Substance: COBIMETINIB
     Indication: Cholangiocarcinoma
     Dosage: 15/OCT/2018?COBIMETINIB MOST RECENT DOSE ON :01/JAN/2019 ?COBIMETINIB: 60 MG PO QD ON DAYS 1 - 21
     Route: 065
     Dates: start: 20180925
  4. COBIMETINIB [Suspect]
     Active Substance: COBIMETINIB
     Indication: Bile duct adenocarcinoma
  5. MEDROL [Concomitant]
     Active Substance: METHYLPREDNISOLONE

REACTIONS (8)
  - Blood bilirubin increased [Not Recovered/Not Resolved]
  - Anaemia [Unknown]
  - Hyperglycaemia [Unknown]
  - Lymphocyte count decreased [Unknown]
  - Alanine aminotransferase increased [Unknown]
  - Blood alkaline phosphatase increased [Unknown]
  - Alanine aminotransferase increased [Unknown]
  - Hyponatraemia [Unknown]

NARRATIVE: CASE EVENT DATE: 20181204
